FAERS Safety Report 10962396 (Version 5)
Quarter: 2015Q3

REPORT INFORMATION
  Report Type: Spontaneous
  Country: US (occurrence: US)
  Receive Date: 20150327
  Receipt Date: 20150716
  Transmission Date: 20151125
  Serious: Yes (Life-Threatening, Hospitalization, Other)
  Sender: FDA-Public Use
  Company Number: US-ELI_LILLY_AND_COMPANY-US201503006372

PATIENT
  Sex: Female

DRUGS (12)
  1. PERCOCET                           /00446701/ [Concomitant]
     Active Substance: ACETAMINOPHEN\OXYCODONE HYDROCHLORIDE\OXYCODONE TEREPHTHALATE
     Dosage: UNK UNK, QID
  2. ZOFRAN [Concomitant]
     Active Substance: ONDANSETRON HYDROCHLORIDE
  3. INSULIN HUMAN [Suspect]
     Active Substance: INSULIN HUMAN
     Indication: TYPE 1 DIABETES MELLITUS
     Dosage: 10 U, PRN
     Route: 065
  4. XANAX [Concomitant]
     Active Substance: ALPRAZOLAM
     Dosage: UNK, TID
  5. GLUCAGON. [Concomitant]
     Active Substance: GLUCAGON
  6. INSULIN HUMAN [Suspect]
     Active Substance: INSULIN HUMAN
     Dosage: 6 U, SINGLE
     Route: 065
  7. COUMADIN [Suspect]
     Active Substance: WARFARIN SODIUM
     Indication: PRODUCT USED FOR UNKNOWN INDICATION
     Dosage: 32 MG, UNKNOWN
     Route: 065
  8. INSULIN HUMAN [Suspect]
     Active Substance: INSULIN HUMAN
     Dosage: 5 U, SINGLE
     Route: 065
  9. PHENERGAN [Concomitant]
     Active Substance: PROMETHAZINE HYDROCHLORIDE
  10. INSULIN HUMAN [Suspect]
     Active Substance: INSULIN HUMAN
     Dosage: 10 U, PRN
     Route: 065
  11. ZANAFLEX [Concomitant]
     Active Substance: TIZANIDINE HYDROCHLORIDE
     Indication: JOINT LOCK
  12. IMITREX [Concomitant]
     Active Substance: SUMATRIPTAN\SUMATRIPTAN SUCCINATE
     Indication: MIGRAINE

REACTIONS (42)
  - Fluid intake reduced [Unknown]
  - Pancreatic disorder [Unknown]
  - Ketoacidosis [Unknown]
  - Ketoacidosis [Unknown]
  - Blood magnesium abnormal [Unknown]
  - Blood pressure increased [Unknown]
  - Gait disturbance [Unknown]
  - Rheumatoid arthritis [Unknown]
  - Coma [Unknown]
  - Gastritis erosive [Unknown]
  - Nerve injury [Unknown]
  - Maternal exposure during pregnancy [Recovered/Resolved]
  - Dehydration [Unknown]
  - Nausea [Unknown]
  - Coma [Unknown]
  - Blood glucose increased [Unknown]
  - Haemoptysis [Unknown]
  - Malaise [Unknown]
  - Fatigue [Unknown]
  - Unevaluable event [Unknown]
  - Blood glucose increased [Unknown]
  - Viral infection [Unknown]
  - Product tampering [Unknown]
  - Somnolence [Unknown]
  - Osteoarthritis [Unknown]
  - Erythema [Unknown]
  - Blood potassium abnormal [Unknown]
  - Memory impairment [Unknown]
  - Blood glucose decreased [Unknown]
  - Hypotension [Unknown]
  - Haemorrhage [Unknown]
  - Haematemesis [Unknown]
  - Peripheral embolism [Unknown]
  - Monoplegia [Unknown]
  - Haemorrhage [Unknown]
  - Cardiac disorder [Unknown]
  - Counterfeit drug administered [Unknown]
  - Cough [Unknown]
  - Asthenia [Unknown]
  - Dyspepsia [Unknown]
  - Scar [Unknown]
  - Vein disorder [Unknown]

NARRATIVE: CASE EVENT DATE: 1984
